FAERS Safety Report 17943110 (Version 1)
Quarter: 2020Q2

REPORT INFORMATION
  Report Type: Report from Study
  Country: CL (occurrence: CL)
  Receive Date: 20200625
  Receipt Date: 20200625
  Transmission Date: 20200714
  Serious: Yes (Other)
  Sender: FDA-Public Use
  Company Number: NVSC2020CL177349

PATIENT
  Sex: Female

DRUGS (2)
  1. COSENTYX [Suspect]
     Active Substance: SECUKINUMAB
     Indication: PSORIATIC ARTHROPATHY
     Dosage: 150 MG
     Route: 058
     Dates: start: 20200123
  2. COSENTYX [Suspect]
     Active Substance: SECUKINUMAB
     Dosage: 150 MG
     Route: 058
     Dates: start: 20200519

REACTIONS (6)
  - Eye pain [Recovering/Resolving]
  - Cough [Unknown]
  - Oropharyngeal pain [Unknown]
  - Dry throat [Not Recovered/Not Resolved]
  - Eye burns [Recovering/Resolving]
  - Eye irritation [Recovering/Resolving]
